FAERS Safety Report 22095280 (Version 2)
Quarter: 2023Q1

REPORT INFORMATION
  Report Type: Spontaneous
  Country: RU (occurrence: RU)
  Receive Date: 20230314
  Receipt Date: 20230324
  Transmission Date: 20230418
  Serious: Yes (Other)
  Sender: FDA-Public Use
  Company Number: RU-002147023-NVSC2023RU057343

PATIENT
  Age: 45 Year
  Sex: Male
  Weight: 106 kg

DRUGS (1)
  1. CEFTRIAXONE [Suspect]
     Active Substance: CEFTRIAXONE
     Indication: Lyme disease
     Dosage: 2 MG, QD
     Route: 042
     Dates: start: 20191211, end: 20191225

REACTIONS (1)
  - Tubulointerstitial nephritis [Recovered/Resolved with Sequelae]
